FAERS Safety Report 6259957-9 (Version None)
Quarter: 2009Q3

REPORT INFORMATION
  Report Type: 
  Country: None (occurrence: None)
  Receive Date: 20090706
  Receipt Date: 20090706
  Transmission Date: 20100115
  Serious: Yes (Hospitalization)
  Sender: FDA-Public Use
  Company Number: None

PATIENT
  Sex: Male

DRUGS (17)
  1. IXABEPILONE (GA6181ZB) [Suspect]
     Indication: PANCREATIC CARCINOMA
     Dosage: 33 MG
     Dates: start: 20090415, end: 20090527
  2. SUNITINIB [Suspect]
     Dosage: 37.5 MG
     Dates: start: 20090415, end: 20090527
  3. NADOLOL [Concomitant]
  4. NEXIUM [Concomitant]
  5. DUONEB [Concomitant]
  6. AZITHROMYCIN [Concomitant]
  7. ZOFRAN [Concomitant]
  8. PERCOCET [Concomitant]
  9. AMBIEN [Concomitant]
  10. . [Concomitant]
  11. . [Concomitant]
  12. . [Concomitant]
  13. . [Concomitant]
  14. . [Concomitant]
  15. . [Concomitant]
  16. . [Concomitant]
  17. . [Concomitant]

REACTIONS (5)
  - ABDOMINAL PAIN [None]
  - HAEMATOCHEZIA [None]
  - HAEMOGLOBIN DECREASED [None]
  - PNEUMONIA [None]
  - PYREXIA [None]
